FAERS Safety Report 17000261 (Version 1)
Quarter: 2019Q4

REPORT INFORMATION
  Report Type: Spontaneous
  Country: RU (occurrence: RU)
  Receive Date: 20191106
  Receipt Date: 20191106
  Transmission Date: 20200122
  Serious: Yes (Disabling, Other)
  Sender: FDA-Public Use
  Company Number: RU-009507513-1911RUS000366

PATIENT
  Sex: Male

DRUGS (2)
  1. KEYTRUDA [Suspect]
     Active Substance: PEMBROLIZUMAB
     Dosage: UNK
  2. KEYTRUDA [Suspect]
     Active Substance: PEMBROLIZUMAB
     Dosage: UNK

REACTIONS (6)
  - Arthralgia [Not Recovered/Not Resolved]
  - Motor dysfunction [Recovered/Resolved]
  - Progressive muscular atrophy [Unknown]
  - Arthralgia [Recovered/Resolved]
  - Joint range of motion decreased [Unknown]
  - Mobility decreased [Recovered/Resolved]
